FAERS Safety Report 20436829 (Version 1)
Quarter: 2022Q1

REPORT INFORMATION
  Report Type: Report from Study
  Country: BR (occurrence: None)
  Receive Date: 20220207
  Receipt Date: 20220207
  Transmission Date: 20220423
  Serious: Yes (Hospitalization, Disabling)
  Sender: FDA-Public Use
  Company Number: BR-Merck KGaA-9085494

PATIENT
  Age: 65 Year
  Sex: Female

DRUGS (5)
  1. REBIF [Suspect]
     Active Substance: INTERFERON BETA-1A
     Indication: Multiple sclerosis
     Route: 058
     Dates: start: 20090731, end: 20191101
  2. INTERFERON BETA-1A [Suspect]
     Active Substance: INTERFERON BETA-1A
     Indication: Multiple sclerosis
     Dosage: THERAPY START DATE: 04-NOV-2019
     Route: 058
  3. INTERFERON BETA-1A [Suspect]
     Active Substance: INTERFERON BETA-1A
     Route: 058
  4. TEGRETOL [Suspect]
     Active Substance: CARBAMAZEPINE
     Indication: Pain
  5. COVID-19 VACCINE [Concomitant]
     Indication: COVID-19 immunisation

REACTIONS (18)
  - Disability [Unknown]
  - Dehydration [Not Recovered/Not Resolved]
  - Urinary tract infection [Not Recovered/Not Resolved]
  - Blood sodium decreased [Recovered/Resolved]
  - Device occlusion [Not Recovered/Not Resolved]
  - Weight decreased [Unknown]
  - Injection site erythema [Not Recovered/Not Resolved]
  - Injection site discolouration [Not Recovered/Not Resolved]
  - Injection site induration [Not Recovered/Not Resolved]
  - Injection site mass [Unknown]
  - Wheelchair user [Unknown]
  - Hypertension [Unknown]
  - Multiple sclerosis [Unknown]
  - Contusion [Not Recovered/Not Resolved]
  - Memory impairment [Not Recovered/Not Resolved]
  - Urinary incontinence [Not Recovered/Not Resolved]
  - Treatment noncompliance [Recovered/Resolved]
  - Lack of injection site rotation [Not Recovered/Not Resolved]

NARRATIVE: CASE EVENT DATE: 20170101
